FAERS Safety Report 4560821-1 (Version None)
Quarter: 2005Q1

REPORT INFORMATION
  Report Type: 
  Country: None (occurrence: None)
  Receive Date: 20050121
  Receipt Date: 20041112
  Transmission Date: 20050727
  Serious: No
  Sender: FDA-Public Use
  Company Number: 9673

PATIENT
  Age: 77 Year
  Sex: Female

DRUGS (6)
  1. AMIODARONE HCL [Suspect]
     Indication: ATRIAL FIBRILLATION
     Dosage: 100 MG PO
     Route: 048
     Dates: start: 20041025, end: 20041029
  2. PREDNISOLONE [Concomitant]
  3. PARAFFIN [Concomitant]
  4. AMILORIDE; FRUSEMIDE [Concomitant]
  5. RISEDRONIC ACID [Concomitant]
  6. CALCIUM WITH VITAMIN D [Concomitant]

REACTIONS (2)
  - ASTHENIA [None]
  - DIFFICULTY IN WALKING [None]
